FAERS Safety Report 24079219 (Version 1)
Quarter: 2024Q3

REPORT INFORMATION
  Report Type: Spontaneous
  Country: US (occurrence: None)
  Receive Date: 20240710
  Receipt Date: 20240710
  Transmission Date: 20241017
  Serious: Yes (Hospitalization)
  Sender: Public
  Company Number: None

PATIENT
  Sex: Female

DRUGS (4)
  1. OPSUMIT [Suspect]
     Active Substance: MACITENTAN
     Indication: Pulmonary arterial hypertension
     Dosage: FREQUENCY : DAILY;?
     Route: 048
     Dates: start: 202401
  2. VELETRI SDV [Concomitant]
  3. UPTRAVI [Concomitant]
  4. ADEMPAS [Concomitant]

REACTIONS (6)
  - Headache [None]
  - Nausea [None]
  - Abdominal distension [None]
  - Dyspnoea exertional [None]
  - Sensitivity to weather change [None]
  - Decreased activity [None]
